FAERS Safety Report 9739322 (Version 2)
Quarter: 2014Q1

REPORT INFORMATION
  Report Type: Spontaneous
  Country: US (occurrence: US)
  Receive Date: 20131209
  Receipt Date: 20140307
  Transmission Date: 20141002
  Serious: No
  Sender: FDA-Public Use
  Company Number: US-GLAXOSMITHKLINE-A1045729A

PATIENT
  Sex: Male

DRUGS (2)
  1. FABIOR [Suspect]
     Indication: ACNE
     Route: 061
  2. TAZORAC [Suspect]
     Indication: ACNE
     Route: 065

REACTIONS (3)
  - Skin burning sensation [Unknown]
  - Erythema [Unknown]
  - Drug ineffective [Unknown]
